FAERS Safety Report 24654017 (Version 2)
Quarter: 2024Q4

REPORT INFORMATION
  Report Type: Spontaneous
  Country: US (occurrence: US)
  Receive Date: 20241122
  Receipt Date: 20241127
  Transmission Date: 20250115
  Serious: Yes (Other)
  Sender: PFIZER
  Company Number: US-PFIZER INC-PV202400150900

PATIENT
  Age: 63 Year
  Sex: Female
  Weight: 45 kg

DRUGS (11)
  1. CLINDAMYCIN HYDROCHLORIDE [Suspect]
     Active Substance: CLINDAMYCIN HYDROCHLORIDE
     Indication: Prophylaxis
     Dosage: UNK
     Route: 048
     Dates: start: 20240813, end: 20240818
  2. PREDNISONE [Concomitant]
     Active Substance: PREDNISONE
     Indication: Giant cell arteritis
     Dosage: 60 MG, DAILY
     Route: 048
     Dates: start: 20240807, end: 20240902
  3. PREDNISONE [Concomitant]
     Active Substance: PREDNISONE
     Indication: Polymyalgia rheumatica
     Dosage: 10 MG, DAILY
     Dates: start: 20241118
  4. PREDNISONE [Concomitant]
     Active Substance: PREDNISONE
     Dosage: 50 MG
     Dates: start: 20240903, end: 20240918
  5. PREDNISONE [Concomitant]
     Active Substance: PREDNISONE
     Dosage: 40 MG
     Dates: start: 20240919, end: 20241003
  6. PREDNISONE [Concomitant]
     Active Substance: PREDNISONE
     Dosage: 30 MG
     Dates: start: 20241004, end: 20241017
  7. PREDNISONE [Concomitant]
     Active Substance: PREDNISONE
     Dosage: 20 MG
     Dates: start: 20241018, end: 20241101
  8. PREDNISONE [Concomitant]
     Active Substance: PREDNISONE
     Dosage: 15 MG
     Dates: start: 20241102, end: 20241114
  9. PREDNISONE [Concomitant]
     Active Substance: PREDNISONE
     Dosage: 10 MG
     Dates: start: 20241115
  10. TYENNE [Concomitant]
     Active Substance: TOCILIZUMAB-AAZG
     Indication: Giant cell arteritis
     Dosage: 162 MG, WEEKLY
     Dates: start: 20240911
  11. TYENNE [Concomitant]
     Active Substance: TOCILIZUMAB-AAZG
     Indication: Polymyalgia rheumatica
     Dosage: UNK
     Dates: start: 20241114

REACTIONS (8)
  - Deafness [Not Recovered/Not Resolved]
  - Dizziness [Not Recovered/Not Resolved]
  - Vomiting [Recovered/Resolved]
  - Intracranial aneurysm [Not Recovered/Not Resolved]
  - Vestibular disorder [Not Recovered/Not Resolved]
  - Alanine aminotransferase increased [Not Recovered/Not Resolved]
  - Cushingoid [Not Recovered/Not Resolved]
  - Swelling [Not Recovered/Not Resolved]

NARRATIVE: CASE EVENT DATE: 20240822
